FAERS Safety Report 20717491 (Version 1)
Quarter: 2022Q2

REPORT INFORMATION
  Report Type: Spontaneous
  Country: FR (occurrence: FR)
  Receive Date: 20220417
  Receipt Date: 20220417
  Transmission Date: 20220720
  Serious: Yes (Congenital Anomaly)
  Sender: FDA-Public Use
  Company Number: None

PATIENT
  Age: 0 Day
  Sex: Male
  Weight: 3.765 kg

DRUGS (4)
  1. KETOPROFEN [Suspect]
     Active Substance: KETOPROFEN
     Indication: Analgesic therapy
     Dosage: UNIT DOSE : 100 MG, FREQUENCY TIME : 1 TOTAL, DURATION :1 DAYS
     Route: 064
     Dates: start: 20190927, end: 20190927
  2. NEXPLANON [Suspect]
     Active Substance: ETONOGESTREL
     Indication: Contraception
     Dosage: NEXTLANON 68 MG, IMPLANT FOR SUBCUTANEOUS USE, DURATION : 61 DAYS
     Route: 064
     Dates: start: 20190927, end: 20191127
  3. MISOPROSTOL [Suspect]
     Active Substance: MISOPROSTOL
     Indication: Abortion induced
     Dosage: MISOONE 400 MICROGRAMS, UNIT DOSE :2 DF, FREQUENCY TIME :1 TOTAL, DURATION : 1 DAYS
     Route: 064
     Dates: start: 20190927, end: 20190927
  4. MIFEPRISTONE [Suspect]
     Active Substance: MIFEPRISTONE
     Indication: Abortion induced
     Dosage: MIFEGYNE 200 MG, UNIT DOSE : 3 DF, FREQUENCY TIME :1 TOTAL, DURATION : 1 DAYS
     Route: 064
     Dates: start: 20190925, end: 20190925

REACTIONS (3)
  - Cerebral ventricle dilatation [Not Recovered/Not Resolved]
  - Psychomotor skills impaired [Not Recovered/Not Resolved]
  - Epilepsy congenital [Not Recovered/Not Resolved]

NARRATIVE: CASE EVENT DATE: 20200428
